FAERS Safety Report 9258907 (Version 1)
Quarter: 2013Q2

REPORT INFORMATION
  Report Type: Spontaneous
  Country: DE (occurrence: DE)
  Receive Date: 20130426
  Receipt Date: 20130426
  Transmission Date: 20140414
  Serious: Yes (Hospitalization)
  Sender: FDA-Public Use
  Company Number: DE-ELI_LILLY_AND_COMPANY-DE201304005124

PATIENT
  Sex: Female

DRUGS (8)
  1. FORSTEO [Suspect]
     Indication: OSTEOPOROSIS
     Dosage: UNK, QD
     Route: 058
     Dates: start: 20120123
  2. NOVALGIN [Concomitant]
     Dosage: UNK, TID
  3. TARGIN [Concomitant]
  4. PANTOPRAZOL [Concomitant]
  5. DELMUNO [Concomitant]
  6. CARVEDILOL [Concomitant]
  7. CALCIUM WITH VITAMIN D [Concomitant]
  8. DEKRISTOL [Concomitant]
     Dosage: UNK, MONTHLY (1/M)

REACTIONS (1)
  - Pain [Recovered/Resolved]
